FAERS Safety Report 25358756 (Version 2)
Quarter: 2025Q2

REPORT INFORMATION
  Report Type: Report from Study
  Country: US (occurrence: US)
  Receive Date: 20250526
  Receipt Date: 20250604
  Transmission Date: 20250717
  Serious: Yes (Other)
  Sender: ELI LILLY AND COMPANY
  Company Number: US-ELI_LILLY_AND_COMPANY-US202503023327

PATIENT
  Age: 71 Year
  Sex: Male

DRUGS (2)
  1. KISUNLA [Suspect]
     Active Substance: DONANEMAB-AZBT
     Indication: Product used for unknown indication
     Route: 065
     Dates: start: 20250312
  2. KISUNLA [Suspect]
     Active Substance: DONANEMAB-AZBT
     Route: 065
     Dates: start: 20250421

REACTIONS (10)
  - Brain oedema [Unknown]
  - Cerebral haemorrhage [Unknown]
  - Cerebral microhaemorrhage [Unknown]
  - Headache [Recovered/Resolved]
  - Feeling abnormal [Unknown]
  - Feeding disorder [Unknown]
  - Weight decreased [Unknown]
  - Nausea [Recovered/Resolved]
  - Nausea [Unknown]
  - Headache [Unknown]

NARRATIVE: CASE EVENT DATE: 20250505
